FAERS Safety Report 4972945-5 (Version None)
Quarter: 2006Q2

REPORT INFORMATION
  Report Type: 
  Country: None (occurrence: None)
  Receive Date: 20060410
  Receipt Date: 20060331
  Transmission Date: 20061013
  Serious: Yes (Hospitalization, Other)
  Sender: FDA-Public Use
  Company Number: USA-2004-0013262

PATIENT
  Age: 41 Year
  Sex: Male

DRUGS (19)
  1. OXYCONTIN [Suspect]
     Indication: PAIN
     Dosage: SEE IMAGE
     Dates: end: 20020401
  2. MS CONTIN [Concomitant]
  3. MSIR CAPSULES [Concomitant]
  4. MORPHINE SULFATE [Concomitant]
  5. REMERON [Concomitant]
  6. DIAZEPAM [Concomitant]
  7. ZOLOFT [Concomitant]
  8. AMITRIPTYLINE (AMITRIPTYLINE) [Concomitant]
  9. CLONIDINE [Concomitant]
  10. DILAUDID [Concomitant]
  11. VALIUM [Concomitant]
  12. FENTANYL [Concomitant]
  13. DIGOXIN [Concomitant]
  14. LORTAB [Concomitant]
  15. PHENERGAN HCL [Concomitant]
  16. TRILISATE (MAGNESIUM SALICYLATE) [Concomitant]
  17. AMBIEN [Concomitant]
  18. BENADRYL [Concomitant]
  19. CATAPRES [Concomitant]

REACTIONS (56)
  - ABDOMINAL INJURY [None]
  - ABDOMINAL PAIN UPPER [None]
  - ADJUSTMENT DISORDER [None]
  - ANXIETY [None]
  - ARTHRALGIA [None]
  - BACK PAIN [None]
  - BILE DUCT STONE [None]
  - BILIARY DILATATION [None]
  - BLOOD PRESSURE INCREASED [None]
  - CHOLELITHIASIS [None]
  - COLD SWEAT [None]
  - CONDITION AGGRAVATED [None]
  - DELUSIONAL DISORDER, UNSPECIFIED TYPE [None]
  - DENTAL CARIES [None]
  - DEPRESSED MOOD [None]
  - DEPRESSION [None]
  - DIARRHOEA [None]
  - DIZZINESS [None]
  - DRUG DEPENDENCE [None]
  - DRUG EFFECT DECREASED [None]
  - DRUG TOLERANCE [None]
  - DRUG WITHDRAWAL SYNDROME [None]
  - EXTRASKELETAL OSSIFICATION [None]
  - FALL [None]
  - FEELING ABNORMAL [None]
  - FORMICATION [None]
  - GAIT DISTURBANCE [None]
  - GLOSSITIS [None]
  - GROIN PAIN [None]
  - GUN SHOT WOUND [None]
  - HEADACHE [None]
  - HEART RATE INCREASED [None]
  - HYPOAESTHESIA [None]
  - HYPOREFLEXIA [None]
  - INADEQUATE ANALGESIA [None]
  - INSOMNIA [None]
  - IRRITABILITY [None]
  - MENTAL DISORDER [None]
  - MUSCULOSKELETAL DISORDER [None]
  - MYOFASCIAL PAIN SYNDROME [None]
  - NAUSEA [None]
  - NERVOUSNESS [None]
  - OBSESSIVE-COMPULSIVE DISORDER [None]
  - OSTEOARTHRITIS [None]
  - PAIN [None]
  - PANIC ATTACK [None]
  - PARANOIA [None]
  - PATELLOFEMORAL PAIN SYNDROME [None]
  - PHOTOPHOBIA [None]
  - PYREXIA [None]
  - SHOULDER PAIN [None]
  - SLEEP DISORDER [None]
  - TEARFULNESS [None]
  - TREMOR [None]
  - WEIGHT DECREASED [None]
  - WHEEZING [None]
